FAERS Safety Report 10227751 (Version 1)
Quarter: 2014Q2

REPORT INFORMATION
  Report Type: Spontaneous
  Country: US (occurrence: US)
  Receive Date: 20140610
  Receipt Date: 20140610
  Transmission Date: 20141212
  Serious: Yes (Other)
  Sender: FDA-Public Use
  Company Number: US-RB-066552-14

PATIENT
  Sex: Female

DRUGS (1)
  1. MUCINEX FAST MAX SEVERE COLD, FLU, THROAT LIQUID [Suspect]
     Indication: PRODUCT USED FOR UNKNOWN INDICATION
     Dosage: RECOMMENDED DOSE 1-2 TIMES PER DAY
     Route: 048

REACTIONS (1)
  - Anxiety [Unknown]
